FAERS Safety Report 7034189-5 (Version None)
Quarter: 2010Q4

REPORT INFORMATION
  Report Type: 
  Country: None (occurrence: None)
  Receive Date: 20101008
  Receipt Date: 20100930
  Transmission Date: 20110411
  Serious: Yes (Hospitalization)
  Sender: FDA-Public Use
  Company Number: US-BIOGENIDEC-2010BI026880

PATIENT
  Age: 56 Year
  Sex: Female
  Weight: 76 kg

DRUGS (1)
  1. TYSABRI [Suspect]
     Indication: MULTIPLE SCLEROSIS
     Route: 042
     Dates: start: 20081105

REACTIONS (4)
  - GAIT DISTURBANCE [None]
  - IMPAIRED DRIVING ABILITY [None]
  - OSTEOMYELITIS [None]
  - SEPSIS [None]
